FAERS Safety Report 5761687-4 (Version None)
Quarter: 2008Q2

REPORT INFORMATION
  Report Type: 
  Country: None (occurrence: None)
  Receive Date: 20080606
  Receipt Date: 20080527
  Transmission Date: 20081010
  Serious: Yes (Other)
  Sender: FDA-Public Use
  Company Number: US-PFIZER INC-2008026267

PATIENT
  Sex: Female
  Weight: 54.09 kg

DRUGS (8)
  1. LYRICA [Suspect]
     Indication: NEURALGIA
     Route: 048
  2. LYRICA [Suspect]
     Indication: NEUROPATHY PERIPHERAL
  3. SYNTHROID [Concomitant]
  4. DYAZIDE [Concomitant]
  5. ULTRAM [Concomitant]
  6. IBANDRONATE SODIUM [Concomitant]
  7. VESICARE [Concomitant]
  8. TENIDAP [Concomitant]

REACTIONS (2)
  - FATIGUE [None]
  - VISION BLURRED [None]
